FAERS Safety Report 5546709-8 (Version None)
Quarter: 2007Q4

REPORT INFORMATION
  Report Type: 
  Country: None (occurrence: None)
  Receive Date: 20071211
  Receipt Date: 20071203
  Transmission Date: 20080405
  Serious: Yes (Hospitalization)
  Sender: FDA-Public Use
  Company Number: US-JNJFOC-20071103695

PATIENT
  Sex: Female
  Weight: 61.24 kg

DRUGS (8)
  1. INVEGA [Suspect]
     Indication: AFFECT LABILITY
     Route: 048
  2. INVEGA [Suspect]
     Indication: POST-TRAUMATIC STRESS DISORDER
     Route: 048
  3. INVEGA [Suspect]
     Indication: PSYCHOTIC DISORDER
     Route: 048
  4. CELEXA [Concomitant]
     Indication: POST-TRAUMATIC STRESS DISORDER
     Route: 048
  5. CELEXA [Concomitant]
     Indication: ANXIETY
     Route: 048
  6. DEXMETHYLPHENIDATE HYDROCHLORIDE [Concomitant]
     Indication: ATTENTION DEFICIT/HYPERACTIVITY DISORDER
     Route: 065
  7. LUNESTA [Concomitant]
     Indication: POST-TRAUMATIC STRESS DISORDER
     Route: 048
  8. LUNESTA [Concomitant]
     Indication: INSOMNIA
     Route: 048

REACTIONS (3)
  - BLOOD PROLACTIN INCREASED [None]
  - GALACTORRHOEA [None]
  - MAMMARY MICRODUCTECTOMY [None]
